FAERS Safety Report 11615772 (Version 1)
Quarter: 2015Q4

REPORT INFORMATION
  Report Type: Spontaneous
  Country: US (occurrence: None)
  Receive Date: 20151008
  Receipt Date: 20151008
  Transmission Date: 20160304
  Serious: No
  Sender: FDA-Public Use
  Company Number: None

PATIENT
  Age: 68 Year
  Sex: Male
  Weight: 89.5 kg

DRUGS (1)
  1. CARBAMAZEPINE. [Suspect]
     Active Substance: CARBAMAZEPINE
     Indication: BIPOLAR I DISORDER
     Route: 048
     Dates: start: 20150811, end: 20150811

REACTIONS (7)
  - Urticaria [None]
  - Pruritus [None]
  - Hyperhidrosis [None]
  - Oral disorder [None]
  - Rash [None]
  - Erythema multiforme [None]
  - Myalgia [None]

NARRATIVE: CASE EVENT DATE: 20150811
